FAERS Safety Report 9804565 (Version 2)
Quarter: 2014Q1

REPORT INFORMATION
  Report Type: Spontaneous
  Country: US (occurrence: US)
  Receive Date: 20140108
  Receipt Date: 20140213
  Transmission Date: 20141002
  Serious: Yes (Death)
  Sender: FDA-Public Use
  Company Number: US-BRISTOL-MYERS SQUIBB COMPANY-19971134

PATIENT
  Age: 72 Year
  Sex: Female

DRUGS (17)
  1. BYETTA [Suspect]
     Dosage: LAST DOSE ON 31DEC11
     Dates: start: 20070101, end: 20111231
  2. JANUVIA [Suspect]
     Dosage: LAST DOSE ON 31DEC11
     Route: 048
     Dates: start: 20070101, end: 20111231
  3. JANUMET [Suspect]
     Dosage: LAST DOSE ON 31DEC11
     Dates: start: 20070101, end: 20110131
  4. VICTOZA [Suspect]
     Dosage: LAST DOSE ON 31DEC11
     Dates: start: 20070101, end: 20111231
  5. CRESTOR [Concomitant]
     Dosage: 20 UNIT NOS
  6. DETROL [Concomitant]
     Route: 048
  7. GEODON [Concomitant]
  8. METFORMIN [Concomitant]
     Dosage: 500 UNITS NOS
     Route: 048
  9. PROTONIX [Concomitant]
  10. REGLAN [Concomitant]
     Route: 048
  11. TRICOR [Concomitant]
     Route: 048
  12. VITAMIN D [Concomitant]
  13. ZOFRAN [Concomitant]
     Dosage: Q8H. AS NEEDED.
     Route: 048
  14. TRAMADOL [Concomitant]
     Indication: PAIN
     Dosage: AS NEEDED
     Route: 048
  15. BABY ASPIRIN [Concomitant]
  16. BENZTROPINE [Concomitant]
     Dosage: AT BEDTIME.
     Route: 048
  17. ZOSYN [Concomitant]

REACTIONS (1)
  - Pancreatic carcinoma [Fatal]
